FAERS Safety Report 7350736-8 (Version None)
Quarter: 2011Q1

REPORT INFORMATION
  Report Type: 
  Country: None (occurrence: None)
  Receive Date: 20110314
  Receipt Date: 20110304
  Transmission Date: 20110831
  Serious: Yes (Hospitalization)
  Sender: FDA-Public Use
  Company Number: GB-PFIZER INC-2011049105

PATIENT
  Age: 65 Year
  Sex: Female

DRUGS (6)
  1. LOFEPRAMINE [Concomitant]
     Indication: DEPRESSION
     Dosage: 70 MG, 2X/DAY
     Route: 048
  2. FUROSEMIDE [Concomitant]
     Indication: OEDEMA PERIPHERAL
     Dosage: 40 MG, AS NEEDED
     Route: 048
  3. MORPHINE SULFATE [Concomitant]
     Indication: ANALGESIC THERAPY
     Dosage: 90 MG, 2X/DAY
     Route: 048
  4. SIROLIMUS [Suspect]
     Dosage: 4 MG, 1X/DAY
     Route: 048
  5. SLO-PHYLLIN [Concomitant]
     Indication: ASTHMA
     Dosage: 250 MG, 2X/DAY
     Route: 048
  6. AMLODIPINE [Concomitant]
     Indication: HYPERTENSION
     Dosage: 5 MG, 1X/DAY
     Route: 048

REACTIONS (3)
  - DIABETES MELLITUS [None]
  - BLOOD CREATININE INCREASED [None]
  - URINARY TRACT INFECTION [None]
